FAERS Safety Report 15684710 (Version 3)
Quarter: 2019Q1

REPORT INFORMATION
  Report Type: Spontaneous
  Country: GB (occurrence: GB)
  Receive Date: 20181204
  Receipt Date: 20190118
  Transmission Date: 20190417
  Serious: Yes (Death)
  Sender: FDA-Public Use
  Company Number: GB-PFIZER INC-2018495121

PATIENT
  Age: 18 Year
  Sex: Male

DRUGS (3)
  1. XANAX [Suspect]
     Active Substance: ALPRAZOLAM
     Dosage: UNK
  2. TRAMADOL. [Interacting]
     Active Substance: TRAMADOL
     Dosage: UNK
  3. CODEINE [Interacting]
     Active Substance: CODEINE
     Dosage: UNK

REACTIONS (7)
  - Respiratory distress [Fatal]
  - Toxicity to various agents [Fatal]
  - Cardiac arrest [Fatal]
  - Intentional product misuse [Fatal]
  - Snoring [Unknown]
  - Drug interaction [Fatal]
  - Somnolence [Unknown]

NARRATIVE: CASE EVENT DATE: 201807
